FAERS Safety Report 6668782-6 (Version None)
Quarter: 2010Q2

REPORT INFORMATION
  Report Type: 
  Country: None (occurrence: None)
  Receive Date: 20100406
  Receipt Date: 20100329
  Transmission Date: 20101027
  Serious: Yes (Death, Other)
  Sender: FDA-Public Use
  Company Number: JP-BAYER-200911104BYL

PATIENT
  Age: 69 Year
  Sex: Male
  Weight: 43 kg

DRUGS (11)
  1. NEXAVAR [Suspect]
     Indication: RENAL CELL CARCINOMA
     Dosage: TOTAL DAILY DOSE: 400 MG  UNIT DOSE: 200 MG
     Route: 048
     Dates: start: 20081121, end: 20090226
  2. NEXAVAR [Suspect]
     Dosage: UNIT DOSE: 200 MG
     Route: 048
     Dates: start: 20090227, end: 20090424
  3. NEXAVAR [Suspect]
     Dosage: UNIT DOSE: 200 MG
     Route: 048
     Dates: start: 20090529, end: 20090622
  4. PREDNISOLONE [Suspect]
     Indication: SPINAL CORD COMPRESSION
     Route: 048
     Dates: start: 20090530, end: 20090622
  5. OXYCONTIN [Concomitant]
     Indication: BONE PAIN
     Route: 048
     Dates: start: 20090525, end: 20090622
  6. PROCHLORPERAZINE [Concomitant]
     Indication: PROPHYLAXIS OF NAUSEA AND VOMITING
     Route: 048
     Dates: start: 20090525, end: 20090622
  7. BIOFERMIN [Concomitant]
     Indication: PROPHYLAXIS AGAINST DIARRHOEA
     Route: 048
     Dates: start: 20090527, end: 20090622
  8. NEUROTROPIN [Concomitant]
     Indication: BONE PAIN
     Route: 048
     Dates: start: 20090527, end: 20090622
  9. FERROMIA [Concomitant]
     Indication: ANAEMIA PROPHYLAXIS
     Route: 048
     Dates: start: 20090527, end: 20090622
  10. CELECOX [Concomitant]
     Indication: BACK PAIN
     Route: 048
     Dates: start: 20090508, end: 20090526
  11. OMEPRAL [Concomitant]
     Indication: GASTRIC ULCER
     Route: 048
     Dates: start: 20090527, end: 20090622

REACTIONS (3)
  - DIARRHOEA [None]
  - GASTRIC ULCER [None]
  - PNEUMONIA [None]
